FAERS Safety Report 8992978 (Version 1)
Quarter: 2013Q1

REPORT INFORMATION
  Report Type: Report from Study
  Country: NZ (occurrence: NZ)
  Receive Date: 20130102
  Receipt Date: 20130102
  Transmission Date: 20140127
  Serious: Yes (Other)
  Sender: FDA-Public Use
  Company Number: PHHY2012NZ091923

PATIENT
  Sex: Male

DRUGS (1)
  1. CLOZARIL [Suspect]
     Indication: SCHIZOPHRENIA
     Dosage: UNK UKN, UNK
     Dates: start: 19930827

REACTIONS (3)
  - Pericardial effusion [Unknown]
  - Cardiac disorder [Unknown]
  - Antipsychotic drug level increased [Unknown]
